FAERS Safety Report 18459294 (Version 1)
Quarter: 2020Q4

REPORT INFORMATION
  Report Type: Spontaneous
  Country: US (occurrence: US)
  Receive Date: 20201103
  Receipt Date: 20201103
  Transmission Date: 20210114
  Serious: No
  Sender: FDA-Public Use
  Company Number: US-PFIZER INC-2018465966

PATIENT
  Age: 48 Year
  Sex: Male

DRUGS (2)
  1. BOSULIF [Suspect]
     Active Substance: BOSUTINIB MONOHYDRATE
     Dosage: 500 MG, 1X/DAY (AT BEDTIME)
     Route: 048
     Dates: start: 20200115
  2. BOSULIF [Suspect]
     Active Substance: BOSUTINIB MONOHYDRATE
     Dosage: 500 MG, 2X/DAY
     Route: 048
     Dates: start: 201808, end: 201811

REACTIONS (3)
  - Nausea [Unknown]
  - Prescribed overdose [Unknown]
  - Product administration error [Unknown]

NARRATIVE: CASE EVENT DATE: 201808
